FAERS Safety Report 17196178 (Version 1)
Quarter: 2019Q4

REPORT INFORMATION
  Report Type: Other
  Country: CN (occurrence: CN)
  Receive Date: 20191224
  Receipt Date: 20191224
  Transmission Date: 20200122
  Serious: Yes (Other)
  Sender: FDA-Public Use
  Company Number: CN-APOTEX-2019AP026494

PATIENT
  Age: 76 Year
  Sex: Female

DRUGS (1)
  1. SEROXAT [Suspect]
     Active Substance: PAROXETINE HYDROCHLORIDE
     Indication: ANXIETY DISORDER
     Dosage: 20 MG, QD
     Route: 048
     Dates: start: 20191201, end: 20191210

REACTIONS (12)
  - Syncope [Recovering/Resolving]
  - Chest discomfort [Recovering/Resolving]
  - Anxiety [Recovering/Resolving]
  - Vomiting [Recovering/Resolving]
  - Altered state of consciousness [Recovering/Resolving]
  - Hallucination [Recovering/Resolving]
  - Dyspnoea [Recovering/Resolving]
  - Visual impairment [Recovering/Resolving]
  - Nausea [Recovering/Resolving]
  - Dizziness [Recovering/Resolving]
  - Asphyxia [Recovering/Resolving]
  - Palpitations [Recovering/Resolving]

NARRATIVE: CASE EVENT DATE: 20191201
